FAERS Safety Report 4457111-4 (Version None)
Quarter: 2004Q3

REPORT INFORMATION
  Report Type: 
  Country: None (occurrence: None)
  Receive Date: 20040923
  Receipt Date: 20040913
  Transmission Date: 20050211
  Serious: Yes (Hospitalization)
  Sender: FDA-Public Use
  Company Number: GB-ABBOTT-04P-167-0273174-00

PATIENT
  Age: 64 Year
  Sex: Male
  Weight: 103 kg

DRUGS (2)
  1. HUMIRA [Suspect]
     Indication: DRUG USE FOR UNKNOWN INDICATION
     Route: 058
     Dates: start: 20030101
  2. KINERET [Suspect]
     Indication: RHEUMATOID ARTHRITIS
     Dates: start: 20021201, end: 20030401

REACTIONS (1)
  - ANGINA PECTORIS [None]
